FAERS Safety Report 7578731-4 (Version None)
Quarter: 2011Q2

REPORT INFORMATION
  Report Type: 
  Country: None (occurrence: None)
  Receive Date: 20110628
  Receipt Date: 20110620
  Transmission Date: 20111010
  Serious: Yes (Hospitalization, Other)
  Sender: FDA-Public Use
  Company Number: US-ELI_LILLY_AND_COMPANY-US201003000201

PATIENT
  Sex: Male
  Weight: 86.621 kg

DRUGS (7)
  1. MECLIZINE [Concomitant]
  2. NEXIUM [Concomitant]
     Indication: ANTACID THERAPY
  3. ZETIA [Concomitant]
     Indication: BLOOD CHOLESTEROL
  4. ALTACE [Concomitant]
  5. ASPIRIN [Concomitant]
  6. BYETTA [Suspect]
     Dosage: UNK
     Dates: start: 20051208, end: 20060225
  7. SPIRIVA [Concomitant]
     Indication: CHRONIC OBSTRUCTIVE PULMONARY DISEASE

REACTIONS (3)
  - RENAL FAILURE [None]
  - PANCREATITIS ACUTE [None]
  - PANCREATITIS RELAPSING [None]
